FAERS Safety Report 8150609-7 (Version None)
Quarter: 2012Q1

REPORT INFORMATION
  Report Type: 
  Country: None (occurrence: None)
  Receive Date: 20120220
  Receipt Date: 20120209
  Transmission Date: 20120608
  Serious: Yes (Other)
  Sender: FDA-Public Use
  Company Number: PHHY2012HR011494

PATIENT
  Age: 62 Year
  Sex: Male
  Weight: 85 kg

DRUGS (9)
  1. PANTOPRAZOLE [Interacting]
     Dosage: 20 MG, ( 1 PER 1 DAY)
     Route: 048
     Dates: start: 20100501
  2. LERCANIDIPINE [Suspect]
     Dosage: 10 MG
  3. NEORAL [Interacting]
     Indication: PROPHYLAXIS AGAINST TRANSPLANT REJECTION
     Dosage: 100 MG, PER DAY
     Route: 048
     Dates: start: 20020701
  4. ATENOLOL [Interacting]
     Dosage: 50 MG, (1 PER 1 DAY)
     Route: 048
  5. TRITAZIDE [Interacting]
     Dosage: 15 MG, (1 PER 1 DAY)
     Route: 048
  6. FUROSEMIDE [Interacting]
     Indication: CARDIAC FAILURE
     Dosage: 1 DF/DAY
     Route: 048
  7. IMURAN [Interacting]
     Indication: PROPHYLAXIS AGAINST TRANSPLANT REJECTION
     Dosage: 25 MG, (1 PER 1 DAY)
     Route: 048
  8. ALLOPURINOL [Interacting]
     Indication: HYPERURICAEMIA
     Dosage: 1 DF/DAY
     Route: 048
  9. ANTIEPILEPTICS [Concomitant]
     Dosage: UNK UKN, UNK

REACTIONS (12)
  - VERTIGO [None]
  - COUGH [None]
  - DRUG INTERACTION [None]
  - HYPOACUSIS [None]
  - CATARACT [None]
  - CEREBROVASCULAR DISORDER [None]
  - HALLUCINATION, AUDITORY [None]
  - AGITATION [None]
  - LOSS OF CONSCIOUSNESS [None]
  - RESTLESSNESS [None]
  - CEREBRAL ATROPHY [None]
  - TREMOR [None]
